FAERS Safety Report 7249211 (Version 1)
Quarter: 2020Q3

REPORT INFORMATION
  Report Type: Report from Study
  Country: US (occurrence: US)
  Receive Date: 20100119
  Receipt Date: 20100119
  Transmission Date: 20201105
  Serious: Yes (Other)
  Sender: FDA-Public Use
  Company Number: US-ROCHE-679156

PATIENT
  Age: 66 Year
  Sex: Female
  Weight: 83.9 kg

DRUGS (5)
  1. MOTRIN [Concomitant]
     Active Substance: IBUPROFEN
  2. IBANDRONIC ACID. [Suspect]
     Active Substance: IBANDRONIC ACID
     Indication: OSTEOPENIA
     Dosage: FREQUENCY: ONCE
     Route: 048
     Dates: start: 20090701, end: 20090701
  3. ASA [Concomitant]
     Active Substance: ASPIRIN
     Dosage: FREQUENCY: QD
  4. NITROGLYCERIN. [Concomitant]
     Active Substance: NITROGLYCERIN
     Dosage: AS PATCHES AND TABLETS
  5. DARVOCET [Concomitant]
     Active Substance: ACETAMINOPHEN\PROPOXYPHENE HYDROCHLORIDE

REACTIONS (6)
  - Weight increased [Unknown]
  - Nervous system disorder [Unknown]
  - Oedema peripheral [Unknown]
  - Fluid retention [Not Recovered/Not Resolved]
  - Pain in extremity [Not Recovered/Not Resolved]
  - Chest pain [Unknown]

NARRATIVE: CASE EVENT DATE: 20090701
